FAERS Safety Report 5639490-5 (Version None)
Quarter: 2008Q1

REPORT INFORMATION
  Report Type: 
  Country: None (occurrence: None)
  Receive Date: 20080226
  Receipt Date: 20080207
  Transmission Date: 20080703
  Serious: Yes (Other)
  Sender: FDA-Public Use
  Company Number: GB-PFIZER INC-2008016543

PATIENT

DRUGS (2)
  1. XALATAN [Suspect]
  2. SSRI [Concomitant]

REACTIONS (1)
  - HALLUCINATION [None]
